FAERS Safety Report 14890069 (Version 1)
Quarter: 2018Q2

REPORT INFORMATION
  Report Type: Spontaneous
  Country: AU (occurrence: AU)
  Receive Date: 20180514
  Receipt Date: 20180514
  Transmission Date: 20180711
  Serious: Yes (Other)
  Sender: FDA-Public Use
  Company Number: AU-ROCHE-1829383

PATIENT
  Sex: Female

DRUGS (6)
  1. NOTEN [Concomitant]
     Active Substance: ATENOLOL
     Route: 065
  2. NOTEN [Concomitant]
     Active Substance: ATENOLOL
     Route: 065
  3. PEGASYS [Suspect]
     Active Substance: PEGINTERFERON ALFA-2A
     Indication: HAEMATOCRIT
     Route: 058
  4. CARBIMAZOLE [Concomitant]
     Active Substance: CARBIMAZOLE
     Route: 065
  5. ASPIRIN. [Concomitant]
     Active Substance: ASPIRIN
     Indication: HAEMATOCRIT
  6. CARBIMAZOLE [Concomitant]
     Active Substance: CARBIMAZOLE
     Route: 065

REACTIONS (7)
  - Thyroiditis [Unknown]
  - Neutropenia [Unknown]
  - Off label use [Unknown]
  - Intentional product use issue [Unknown]
  - Hyperthyroidism [Recovering/Resolving]
  - Thyroid disorder [Unknown]
  - Basedow^s disease [Unknown]
